FAERS Safety Report 24015494 (Version 1)
Quarter: 2024Q2

REPORT INFORMATION
  Report Type: Spontaneous
  Country: US (occurrence: None)
  Receive Date: 20240626
  Receipt Date: 20240626
  Transmission Date: 20240716
  Serious: Yes (Disabling, Other)
  Sender: FDA-Public Use
  Company Number: None

PATIENT
  Age: 36 Year
  Sex: Female
  Weight: 72 kg

DRUGS (12)
  1. TRAMADOL [Suspect]
     Active Substance: TRAMADOL\TRAMADOL HYDROCHLORIDE
     Indication: Myalgia
     Dosage: .25 TABLET (S) ORAL
     Route: 048
     Dates: start: 20230924, end: 20231101
  2. BUPROPION [Suspect]
     Active Substance: BUPROPION\BUPROPION HYDROCHLORIDE
  3. Hailey [Concomitant]
  4. PULMICORT FLEXHALER [Concomitant]
     Active Substance: BUDESONIDE
  5. Levalbuterol tartrate inhaler [Concomitant]
  6. METOPROLOL TARTRATE [Concomitant]
     Active Substance: METOPROLOL TARTRATE
  7. RESTASIS [Concomitant]
     Active Substance: CYCLOSPORINE
  8. FLUTICASONE [Concomitant]
     Active Substance: FLUTICASONE
  9. VITAMIN B12 [Concomitant]
     Active Substance: CYANOCOBALAMIN
  10. FOLATE SODIUM [Concomitant]
     Active Substance: FOLATE SODIUM
  11. VITAMIN D3 [Concomitant]
     Active Substance: CHOLECALCIFEROL
  12. MENAQUINONE 6 [Concomitant]
     Active Substance: MENAQUINONE 6

REACTIONS (24)
  - Sexual dysfunction [None]
  - Withdrawal syndrome [None]
  - Tachycardia [None]
  - Insomnia [None]
  - Agitation [None]
  - Anxiety [None]
  - Paranoia [None]
  - Cognitive disorder [None]
  - Emotional disorder [None]
  - Anhedonia [None]
  - Depersonalisation/derealisation disorder [None]
  - Blepharospasm [None]
  - Sedation [None]
  - Drug tolerance [None]
  - Formication [None]
  - Clitoral engorgement [None]
  - Altered visual depth perception [None]
  - Disturbance in attention [None]
  - Dizziness [None]
  - Balance disorder [None]
  - Infection [None]
  - Middle insomnia [None]
  - Coccydynia [None]
  - Hypertonic bladder [None]

NARRATIVE: CASE EVENT DATE: 20231113
